FAERS Safety Report 5734421-1 (Version None)
Quarter: 2008Q2

REPORT INFORMATION
  Report Type: 
  Country: None (occurrence: None)
  Receive Date: 20080512
  Receipt Date: 20070919
  Transmission Date: 20081010
  Serious: No
  Sender: FDA-Public Use
  Company Number: A0683966A

PATIENT
  Age: 37 Year
  Sex: Female

DRUGS (7)
  1. RELAFEN [Suspect]
     Dosage: 750MG TWICE PER DAY
     Route: 048
     Dates: start: 20070816
  2. PRAMLINTIDE [Suspect]
     Route: 058
     Dates: start: 20070816
  3. LANTUS [Concomitant]
  4. NOVOLOG [Concomitant]
  5. PIOGLITAZONE [Concomitant]
  6. OXCARBAZEPINE [Concomitant]
     Dates: start: 20070101
  7. SEROQUEL [Concomitant]
     Dates: start: 20070201

REACTIONS (3)
  - DIARRHOEA [None]
  - FATIGUE [None]
  - FLATULENCE [None]
